FAERS Safety Report 21629306 (Version 3)
Quarter: 2023Q2

REPORT INFORMATION
  Report Type: Spontaneous
  Country: FR (occurrence: FR)
  Receive Date: 20221122
  Receipt Date: 20230424
  Transmission Date: 20230721
  Serious: Yes (Hospitalization, Other)
  Sender: FDA-Public Use
  Company Number: FR-SA-SAC20221121001390

PATIENT
  Age: 74 Year
  Sex: Male
  Weight: 75 kg

DRUGS (9)
  1. DUPIXENT [Suspect]
     Active Substance: DUPILUMAB
     Indication: Asthma
     Dosage: 600 MG, 1X
     Route: 058
     Dates: start: 20220103, end: 20220103
  2. DUPIXENT [Suspect]
     Active Substance: DUPILUMAB
     Dosage: 300 MG, QOW
     Route: 058
     Dates: end: 20230330
  3. MEPOLIZUMAB [Concomitant]
     Active Substance: MEPOLIZUMAB
     Dosage: 100 MG, QD
     Route: 058
     Dates: end: 20230330
  4. BENRALIZUMAB [Concomitant]
     Active Substance: BENRALIZUMAB
     Dosage: UNK
  5. XOLAIR [Concomitant]
     Active Substance: OMALIZUMAB
     Dosage: 375 MG, QD
     Route: 058
     Dates: start: 20151103, end: 20180212
  6. NUCALA [Concomitant]
     Active Substance: MEPOLIZUMAB
     Dosage: 100 MG, QD
     Route: 058
     Dates: start: 20180309, end: 20200206
  7. NUCALA [Concomitant]
     Active Substance: MEPOLIZUMAB
     Dosage: 100 MG, QD
     Route: 058
     Dates: start: 20230330, end: 20230330
  8. FASENRA [Concomitant]
     Active Substance: BENRALIZUMAB
     Dosage: 30 MG, QD
     Route: 058
     Dates: start: 20200206, end: 20200506
  9. FASENRA [Concomitant]
     Active Substance: BENRALIZUMAB
     Dosage: 30 MG, QD
     Route: 058
     Dates: start: 20200506, end: 20220103

REACTIONS (5)
  - Eosinophilic pneumonia [Recovered/Resolved]
  - Cough [Unknown]
  - Wheezing [Unknown]
  - Eosinophil count abnormal [Unknown]
  - Eosinophilia [Unknown]

NARRATIVE: CASE EVENT DATE: 20221116
